FAERS Safety Report 10891726 (Version 6)
Quarter: 2015Q2

REPORT INFORMATION
  Report Type: Spontaneous
  Country: US (occurrence: US)
  Receive Date: 20150306
  Receipt Date: 20150612
  Transmission Date: 20150821
  Serious: Yes (Hospitalization, Other)
  Sender: FDA-Public Use
  Company Number: US-009507513-1107USA03271

PATIENT
  Sex: Female
  Weight: 63.95 kg

DRUGS (4)
  1. FOSAMAX [Suspect]
     Active Substance: ALENDRONATE SODIUM
     Indication: BONE DENSITY DECREASED
     Dosage: 70 MG, QW
     Route: 048
     Dates: start: 20020814, end: 20080915
  2. FOSAMAX PLUS D [Suspect]
     Active Substance: ALENDRONATE SODIUM\CHOLECALCIFEROL
     Indication: BONE DENSITY DECREASED
     Dosage: 70 MG, UNK
     Route: 048
     Dates: start: 20050626, end: 20060501
  3. ALENDRONATE SODIUM. [Suspect]
     Active Substance: ALENDRONATE SODIUM
     Indication: BONE DENSITY DECREASED
     Dosage: 70 MG, UNK
     Route: 048
     Dates: start: 20080212, end: 20081013
  4. FOSAMAX [Suspect]
     Active Substance: ALENDRONATE SODIUM
     Dosage: 5 MG, QD
     Route: 048
     Dates: start: 20010102

REACTIONS (19)
  - Cataract [Unknown]
  - Intramedullary rod insertion [Unknown]
  - Gastroenteritis Escherichia coli [Unknown]
  - Limb deformity [Unknown]
  - Hypertension [Unknown]
  - Arthropathy [Unknown]
  - Femur fracture [Unknown]
  - Anaemia postoperative [Unknown]
  - Rotator cuff syndrome [Unknown]
  - Osteoarthritis [Unknown]
  - Tonsillar disorder [Unknown]
  - Open reduction of fracture [Unknown]
  - Femur fracture [Unknown]
  - Back disorder [Unknown]
  - Osteoporosis [Unknown]
  - Dry eye [Unknown]
  - Arthralgia [Unknown]
  - Pyrexia [Unknown]
  - Hysterectomy [Unknown]

NARRATIVE: CASE EVENT DATE: 20020516
